FAERS Safety Report 18336769 (Version 1)
Quarter: 2020Q4

REPORT INFORMATION
  Report Type: Spontaneous
  Country: US (occurrence: US)
  Receive Date: 20201002
  Receipt Date: 20201002
  Transmission Date: 20210113
  Serious: Yes (Hospitalization)
  Sender: FDA-Public Use
  Company Number: US-TEVA-2020-US-1833753

PATIENT
  Age: 61 Year
  Sex: Female

DRUGS (1)
  1. AUSTEDO [Suspect]
     Active Substance: DEUTETRABENAZINE
     Indication: TARDIVE DYSKINESIA
     Dosage: 24 MILLIGRAM DAILY;
     Route: 065
     Dates: start: 201805, end: 2019

REACTIONS (9)
  - Weight decreased [Unknown]
  - Malaise [Recovered/Resolved]
  - Nasopharyngitis [Not Recovered/Not Resolved]
  - Tic [Unknown]
  - Vomiting [Not Recovered/Not Resolved]
  - Giardiasis [Unknown]
  - Decreased appetite [Not Recovered/Not Resolved]
  - Nausea [Not Recovered/Not Resolved]
  - Diarrhoea [Not Recovered/Not Resolved]

NARRATIVE: CASE EVENT DATE: 2019
